FAERS Safety Report 9426722 (Version 1)
Quarter: 2013Q3

REPORT INFORMATION
  Report Type: Spontaneous
  Country: US (occurrence: US)
  Receive Date: 20130730
  Receipt Date: 20130730
  Transmission Date: 20140515
  Serious: No
  Sender: FDA-Public Use
  Company Number: US-SANOFI-AVENTIS-2012SA047923

PATIENT
  Age: 72 Year
  Sex: Male

DRUGS (2)
  1. ZOLPIDEM TARTRATE [Suspect]
     Indication: CARDIAC DISORDER
     Route: 048
     Dates: start: 2011, end: 2012
  2. TYLENOL [Concomitant]

REACTIONS (6)
  - Hypersomnia [Unknown]
  - Mydriasis [Unknown]
  - Malaise [Unknown]
  - Therapeutic response prolonged [Unknown]
  - Respiration abnormal [Unknown]
  - Expired drug administered [Unknown]
